FAERS Safety Report 5268624-X (Version None)
Quarter: 2007Q1

REPORT INFORMATION
  Report Type: 
  Country: None (occurrence: None)
  Receive Date: 20070315
  Receipt Date: 20070315
  Transmission Date: 20070707
  Serious: Yes (Life-Threatening, Other)
  Sender: FDA-Public Use
  Company Number: None

PATIENT
  Age: 23 Year
  Sex: Male
  Weight: 70.3075 kg

DRUGS (1)
  1. ABILIFY [Suspect]
     Dosage: 1   QD   PO
     Route: 048
     Dates: start: 20070228, end: 20070308

REACTIONS (8)
  - ANOREXIA [None]
  - HALLUCINATION [None]
  - HEADACHE [None]
  - INSOMNIA [None]
  - MYALGIA [None]
  - NAUSEA [None]
  - SUICIDAL IDEATION [None]
  - TREMOR [None]
